FAERS Safety Report 23298114 (Version 1)
Quarter: 2023Q4

REPORT INFORMATION
  Report Type: Report from Study
  Country: US (occurrence: US)
  Receive Date: 20231214
  Receipt Date: 20231214
  Transmission Date: 20240110
  Serious: Yes (Other)
  Sender: FDA-Public Use
  Company Number: US-ABBVIE-5532607

PATIENT
  Sex: Female

DRUGS (2)
  1. QULIPTA [Suspect]
     Active Substance: ATOGEPANT
     Indication: Product used for unknown indication
     Dosage: FORM STRENGTH: 60 MILLIGRAM
     Route: 048
  2. UBRELVY [Suspect]
     Active Substance: UBROGEPANT
     Indication: Product used for unknown indication
     Dosage: STRENGTH:100 MG; FREQUENCY TEXT: AS NEEDED
     Route: 048

REACTIONS (1)
  - Cerebrovascular accident [Unknown]
